FAERS Safety Report 9170355 (Version 1)
Quarter: 2013Q1

REPORT INFORMATION
  Report Type: Spontaneous
  Country: BR (occurrence: BR)
  Receive Date: 20130319
  Receipt Date: 20130319
  Transmission Date: 20140127
  Serious: Yes (Hospitalization, Other)
  Sender: FDA-Public Use
  Company Number: PHHY2013BR025947

PATIENT
  Sex: Female
  Weight: 47.8 kg

DRUGS (3)
  1. EXJADE [Suspect]
     Indication: SICKLE CELL ANAEMIA
     Dosage: 500 MG,DAILY
  2. EXJADE [Suspect]
     Dosage: 250 MG, 2 TABLETS DAILY
  3. FOLIC ACID [Concomitant]
     Dosage: UNK UKN, UNK

REACTIONS (3)
  - Bone pain [Recovering/Resolving]
  - Pain [Recovering/Resolving]
  - Feeling abnormal [Recovering/Resolving]
